FAERS Safety Report 7722005-5 (Version None)
Quarter: 2011Q3

REPORT INFORMATION
  Report Type: 
  Country: None (occurrence: None)
  Receive Date: 20110831
  Receipt Date: 20110823
  Transmission Date: 20111222
  Serious: Yes (Other)
  Sender: FDA-Public Use
  Company Number: CN-ASTRAZENECA-2011SE50694

PATIENT

DRUGS (4)
  1. ATROPINE [Suspect]
     Route: 030
  2. ROPIVACAINE HYDROCHLORIDE [Suspect]
     Indication: ANAESTHESIA
     Route: 053
  3. ROPIVACAINE HYDROCHLORIDE [Suspect]
     Indication: LIMB OPERATION
     Route: 053
  4. PHENOBARBITAL TAB [Suspect]
     Route: 030

REACTIONS (1)
  - VOCAL CORD PARALYSIS [None]
